FAERS Safety Report 9584064 (Version 1)
Quarter: 2013Q4

REPORT INFORMATION
  Report Type: Spontaneous
  Country: US (occurrence: US)
  Receive Date: 20131002
  Receipt Date: 20131002
  Transmission Date: 20140711
  Serious: No
  Sender: FDA-Public Use
  Company Number: US-AMGEN-USASP2013051218

PATIENT
  Age: 42 Year
  Sex: Female
  Weight: 108.84 kg

DRUGS (6)
  1. ENBREL [Suspect]
     Indication: PRODUCT USED FOR UNKNOWN INDICATION
     Dosage: 50 MG, QWK
     Route: 058
  2. MOBIC [Concomitant]
     Dosage: 15 MG, UNK
  3. COZAAR [Concomitant]
     Dosage: 25 MG, UNK
  4. TRAMADOL HCL [Concomitant]
     Dosage: 150 MG, UNK
  5. METFORMIN ER [Concomitant]
     Dosage: 500 MG, UNK
  6. JANUVIA [Concomitant]
     Dosage: 25 MG, UNK

REACTIONS (2)
  - Respiratory tract congestion [Unknown]
  - Throat irritation [Unknown]
